FAERS Safety Report 8780847 (Version 7)
Quarter: 2016Q1

REPORT INFORMATION
  Report Type: Spontaneous
  Country: US (occurrence: US)
  Receive Date: 20120913
  Receipt Date: 20160121
  Transmission Date: 20160526
  Serious: Yes (Hospitalization, Other)
  Sender: FDA-Public Use
  Company Number: US-009507513-1209USA001514

PATIENT
  Sex: Female
  Weight: 52.15 kg

DRUGS (8)
  1. ASPIRIN. [Concomitant]
     Active Substance: ASPIRIN
     Dosage: 81 MG, QD
     Dates: start: 2000
  2. ALENDRONATE SODIUM. [Suspect]
     Active Substance: ALENDRONATE SODIUM
     Indication: OSTEOPENIA
     Dosage: 70 MG, UNK
     Dates: start: 200802, end: 20110903
  3. VITAMIN E [Concomitant]
     Active Substance: .ALPHA.-TOCOPHEROL
     Dosage: 400 IU, QD
     Dates: start: 1998
  4. OMEGA-3 MARINE TRIGLYCERIDES [Concomitant]
     Active Substance: FISH OIL
     Dosage: 2000 MG, QD
     Dates: start: 2000
  5. VITAMINS (UNSPECIFIED) [Concomitant]
     Active Substance: VITAMINS
     Dosage: 2 DF, QD
     Dates: start: 1995
  6. FOSAMAX [Suspect]
     Active Substance: ALENDRONATE SODIUM
     Indication: OSTEOPENIA
     Dosage: 70 MG, QW
     Route: 048
     Dates: start: 20050302
  7. TOPROL XL [Concomitant]
     Active Substance: METOPROLOL SUCCINATE
     Indication: MITRAL VALVE PROLAPSE
     Dosage: 25 MG, UNK
     Dates: start: 2000
  8. CALCIUM (UNSPECIFIED) (+) VITAMIN D (UNSPECIFIED) [Concomitant]
     Active Substance: CALCIUM CARBONATE\VITAMIN D
     Dosage: 1200 MG, QD
     Dates: start: 1998

REACTIONS (20)
  - Intramedullary rod insertion [Unknown]
  - Femur fracture [Unknown]
  - Femur fracture [Unknown]
  - Vision blurred [Unknown]
  - Fall [Unknown]
  - Osteoarthritis [Unknown]
  - X-ray limb abnormal [Unknown]
  - Blood glucose increased [Unknown]
  - Low turnover osteopathy [Unknown]
  - Laser therapy [Unknown]
  - Hyperlipidaemia [Unknown]
  - Uterine disorder [Unknown]
  - Blood cholesterol increased [Unknown]
  - Nephrolithiasis [Unknown]
  - Cataract [Unknown]
  - Osteoporosis [Unknown]
  - Premature menopause [Unknown]
  - Cataract operation [Unknown]
  - Emotional distress [Unknown]
  - Vertigo [Unknown]

NARRATIVE: CASE EVENT DATE: 200509
